FAERS Safety Report 25776736 (Version 1)
Quarter: 2025Q3

REPORT INFORMATION
  Report Type: Spontaneous
  Country: US (occurrence: US)
  Receive Date: 20250909
  Receipt Date: 20250909
  Transmission Date: 20251021
  Serious: No
  Sender: DOMPE FARMACEUTICI
  Company Number: US-FARMAPROD-202503-0862

PATIENT
  Sex: Female

DRUGS (31)
  1. OXERVATE [Suspect]
     Active Substance: CENEGERMIN-BKBJ
     Indication: Neurotrophic keratopathy
     Route: 047
     Dates: start: 20250305
  2. OXERVATE [Suspect]
     Active Substance: CENEGERMIN-BKBJ
  3. GABAPENTIN [Concomitant]
     Active Substance: GABAPENTIN
  4. LINZESS [Concomitant]
     Active Substance: LINACLOTIDE
  5. LICART [Concomitant]
     Active Substance: DICLOFENAC EPOLAMINE
  6. UBRELVY [Concomitant]
     Active Substance: UBROGEPANT
  7. TRAZODONE HCL [Concomitant]
     Active Substance: TRAZODONE HYDROCHLORIDE
  8. QULIPTA [Concomitant]
     Active Substance: ATOGEPANT
  9. PROGESTERONE [Concomitant]
     Active Substance: PROGESTERONE
  10. PRIMIDONE [Concomitant]
     Active Substance: PRIMIDONE
  11. OMEPRAZOLE [Concomitant]
     Active Substance: OMEPRAZOLE
  12. METHOCARBAMOL [Concomitant]
     Active Substance: METHOCARBAMOL
  13. MAGNESIUM OXIDE [Concomitant]
     Active Substance: MAGNESIUM OXIDE
  14. LIOTHYRONINE SODIUM [Concomitant]
     Active Substance: LIOTHYRONINE SODIUM
  15. CLARITIN [Concomitant]
     Active Substance: LORATADINE
  16. LEVOTHYROXINE SODIUM [Concomitant]
     Active Substance: LEVOTHYROXINE SODIUM
  17. KEPPRA [Concomitant]
     Active Substance: LEVETIRACETAM
  18. ALBUTEROL SULFATE [Concomitant]
     Active Substance: ALBUTEROL SULFATE
  19. FLUOXETINE HYDROCHLORIDE [Concomitant]
     Active Substance: FLUOXETINE HYDROCHLORIDE
  20. PEPCID [Concomitant]
     Active Substance: FAMOTIDINE
  21. DIAZEPAM [Concomitant]
     Active Substance: DIAZEPAM
  22. PRASTERONE [Concomitant]
     Active Substance: PRASTERONE
  23. ESTROGENS\METHYLTESTOSTERONE [Concomitant]
     Active Substance: ESTROGENS\METHYLTESTOSTERONE
  24. TYRVAYA [Concomitant]
     Active Substance: VARENICLINE TARTRATE
  25. XIIDRA [Concomitant]
     Active Substance: LIFITEGRAST
  26. AMITRIPTYLINE [Concomitant]
     Active Substance: AMITRIPTYLINE
  27. MIEBO [Concomitant]
     Active Substance: PERFLUOROHEXYLOCTANE
  28. CYCLOBENZAPRINE [Concomitant]
     Active Substance: CYCLOBENZAPRINE
  29. GABAPENTIN [Concomitant]
     Active Substance: GABAPENTIN
  30. KETOPROFEN [Concomitant]
     Active Substance: KETOPROFEN
  31. LIDOCAINE [Concomitant]
     Active Substance: LIDOCAINE

REACTIONS (2)
  - Eye pain [Not Recovered/Not Resolved]
  - Seasonal allergy [Not Recovered/Not Resolved]
